FAERS Safety Report 13867618 (Version 2)
Quarter: 2017Q4

REPORT INFORMATION
  Report Type: Spontaneous
  Country: US (occurrence: US)
  Receive Date: 20170814
  Receipt Date: 20171114
  Transmission Date: 20180320
  Serious: No
  Sender: FDA-Public Use
  Company Number: US-AMGEN-USASP2017083172

PATIENT
  Age: 77 Year
  Sex: Female

DRUGS (1)
  1. PARSABIV [Suspect]
     Active Substance: ETELCALCETIDE HYDROCHLORIDE
     Indication: HYPERPARATHYROIDISM SECONDARY
     Dosage: 2.5 MG, UNK
     Route: 065
     Dates: start: 20170525

REACTIONS (5)
  - Tachycardia [Unknown]
  - Nausea [Recovered/Resolved]
  - Paraesthesia [Recovered/Resolved]
  - Underdose [Unknown]
  - Paraesthesia oral [Recovered/Resolved]
